FAERS Safety Report 12647513 (Version 1)
Quarter: 2016Q3

REPORT INFORMATION
  Report Type: Spontaneous
  Country: US (occurrence: None)
  Receive Date: 20160811
  Receipt Date: 20160811
  Transmission Date: 20161109
  Serious: No
  Sender: FDA-Public Use
  Company Number: None

PATIENT

DRUGS (5)
  1. SULFASALAZINE PFIZER [Suspect]
     Active Substance: SULFASALAZINE
     Indication: COLITIS ULCERATIVE
     Dosage: 2AM 2PM
     Route: 048
     Dates: start: 20160307
  2. ASPIRIN. [Concomitant]
     Active Substance: ASPIRIN
  3. VITAMIN B12 [Concomitant]
     Active Substance: CYANOCOBALAMIN
  4. D-3 [Concomitant]
     Active Substance: CHOLECALCIFEROL
  5. FISH OIL [Concomitant]
     Active Substance: FISH OIL

REACTIONS (7)
  - Dysgeusia [None]
  - Urticaria [None]
  - Vomiting [None]
  - Decreased appetite [None]
  - Weight decreased [None]
  - Eructation [None]
  - Urinary incontinence [None]

NARRATIVE: CASE EVENT DATE: 20160707
